FAERS Safety Report 13134464 (Version 1)
Quarter: 2017Q1

REPORT INFORMATION
  Report Type: Spontaneous
  Country: US (occurrence: US)
  Receive Date: 20170120
  Receipt Date: 20170120
  Transmission Date: 20170428
  Serious: Yes (Other)
  Sender: FDA-Public Use
  Company Number: US-ASTRAZENECA-2017SE05188

PATIENT
  Sex: Male

DRUGS (3)
  1. NITRATES [Concomitant]
     Active Substance: UNSPECIFIED INGREDIENT
  2. CHOLESTEROL MEDICATIONS [Concomitant]
     Active Substance: UNSPECIFIED INGREDIENT
  3. BRILINTA [Suspect]
     Active Substance: TICAGRELOR
     Indication: STENT PLACEMENT
     Route: 048
     Dates: start: 2015

REACTIONS (1)
  - Myocardial infarction [Unknown]

NARRATIVE: CASE EVENT DATE: 2016
